FAERS Safety Report 5298328-9 (Version None)
Quarter: 2007Q2

REPORT INFORMATION
  Report Type: 
  Country: None (occurrence: None)
  Receive Date: 20070409
  Receipt Date: 20070328
  Transmission Date: 20071010
  Serious: Yes (Hospitalization, Other)
  Sender: FDA-Public Use
  Company Number: 2007-00748

PATIENT
  Age: 83 Year
  Sex: Female

DRUGS (3)
  1. VELCADE [Suspect]
     Indication: MULTIPLE MYELOMA
     Dosage: SEE IMAGE
     Dates: start: 20070223, end: 20070305
  2. VELCADE [Suspect]
     Indication: MULTIPLE MYELOMA
     Dosage: SEE IMAGE
     Dates: start: 20070326
  3. DECADRON [Suspect]
     Indication: MULTIPLE MYELOMA
     Dosage: 20.00 MG
     Dates: start: 20070223

REACTIONS (4)
  - HYPONATRAEMIA [None]
  - LIVER DISORDER [None]
  - NEOPLASM PROGRESSION [None]
  - VOLVULUS [None]
